FAERS Safety Report 20490732 (Version 2)
Quarter: 2022Q1

REPORT INFORMATION
  Report Type: Spontaneous
  Country: US (occurrence: None)
  Receive Date: 20220218
  Receipt Date: 20220304
  Transmission Date: 20220424
  Serious: Yes (Other)
  Sender: FDA-Public Use
  Company Number: US-FRESENIUS KABI-FK202201838

PATIENT
  Age: 49 Year
  Sex: Male

DRUGS (6)
  1. LEUCOVORIN CALCIUM [Suspect]
     Active Substance: LEUCOVORIN CALCIUM
     Indication: Oesophageal cancer metastatic
     Dosage: EVERY 2 WEEKS Q2W
     Route: 042
     Dates: start: 20210707, end: 20210915
  2. FLUOROURACIL [Suspect]
     Active Substance: FLUOROURACIL
     Indication: Oesophageal cancer metastatic
     Dosage: EVERY 2 WEEKS Q2W
     Route: 042
     Dates: start: 20210707, end: 20210915
  3. OXALIPLATIN [Suspect]
     Active Substance: OXALIPLATIN
     Indication: Oesophageal cancer metastatic
     Dosage: EVERY 2 WEEKS Q2W
     Route: 042
     Dates: start: 20210707, end: 20210915
  4. FONDAPARINUX SODIUM [Concomitant]
     Active Substance: FONDAPARINUX SODIUM
     Indication: Product used for unknown indication
     Route: 065
     Dates: start: 20210924, end: 20210928
  5. VITAMINS NOS/MINERALS NOS/AMINO ACIDS NOS/CARBOHYDRATES NOS [Concomitant]
     Indication: Product used for unknown indication
     Route: 065
     Dates: start: 20210701, end: 20210929
  6. LEVOFLOXACIN [Concomitant]
     Active Substance: LEVOFLOXACIN
     Indication: Product used for unknown indication
     Route: 065
     Dates: start: 20210701

REACTIONS (1)
  - Gastrointestinal haemorrhage [Not Recovered/Not Resolved]

NARRATIVE: CASE EVENT DATE: 20210928
